FAERS Safety Report 9837354 (Version 2)
Quarter: 2014Q2

REPORT INFORMATION
  Report Type: Spontaneous
  Country: US (occurrence: None)
  Receive Date: 20131205
  Receipt Date: 20140416
  Transmission Date: 20141212
  Serious: No
  Sender: FDA-Public Use
  Company Number: 163-POMAL-13094245

PATIENT
  Age: 82 Year
  Sex: Male
  Weight: 73.48 kg

DRUGS (2)
  1. POMALYST [Suspect]
     Indication: PLASMA CELL MYELOMA
     Dosage: 4 MG, 21 IN 21 D, PO
     Route: 048
     Dates: start: 20130610, end: 2013
  2. ROPINIROLE [Concomitant]

REACTIONS (3)
  - Eye swelling [None]
  - Muscle spasms [None]
  - Tenderness [None]
